FAERS Safety Report 8170645-4 (Version None)
Quarter: 2012Q1

REPORT INFORMATION
  Report Type: 
  Country: None (occurrence: None)
  Receive Date: 20120228
  Receipt Date: 20120216
  Transmission Date: 20120608
  Serious: Yes (Other)
  Sender: FDA-Public Use
  Company Number: CA-ROCHE-1042471

PATIENT
  Sex: Female

DRUGS (1)
  1. XOLAIR [Suspect]
     Indication: ASTHMA
     Route: 058
     Dates: start: 20060308

REACTIONS (7)
  - CHOLELITHIASIS [None]
  - DYSPHONIA [None]
  - MALAISE [None]
  - HYPOACUSIS [None]
  - PYREXIA [None]
  - FATIGUE [None]
  - VOMITING [None]
